FAERS Safety Report 5692941-2 (Version None)
Quarter: 2008Q2

REPORT INFORMATION
  Report Type: 
  Country: None (occurrence: None)
  Receive Date: 20080328
  Receipt Date: 20070612
  Transmission Date: 20081010
  Serious: Yes (Hospitalization)
  Sender: FDA-Public Use
  Company Number: HQWYE585112JUN07

PATIENT
  Age: 58 Year
  Sex: Female

DRUGS (3)
  1. PROTONIX [Suspect]
  2. REGLAN [Suspect]
  3. ZOSYN [Suspect]

REACTIONS (1)
  - PAIN [None]
